FAERS Safety Report 9517896 (Version 2)
Quarter: 2014Q1

REPORT INFORMATION
  Report Type: Spontaneous
  Country: US (occurrence: None)
  Receive Date: 20130305
  Receipt Date: 20140306
  Transmission Date: 20141002
  Serious: Yes (Disabling, Other)
  Sender: FDA-Public Use
  Company Number: 163-21880-12114095

PATIENT
  Age: 86 Year
  Sex: Female

DRUGS (2)
  1. REVLIMID [Suspect]
     Indication: MYELODYSPLASTIC SYNDROME
     Route: 048
     Dates: start: 20120723, end: 20120904
  2. COUMADIN (WARFARIN SODIUM) [Concomitant]

REACTIONS (3)
  - Thrombosis [None]
  - Deep vein thrombosis [None]
  - Haemoglobin decreased [None]
